FAERS Safety Report 10047306 (Version 2)
Quarter: 2014Q1

REPORT INFORMATION
  Report Type: Spontaneous
  Country: US (occurrence: US)
  Receive Date: 20140331
  Receipt Date: 20140331
  Transmission Date: 20141002
  Serious: No
  Sender: FDA-Public Use
  Company Number: US-MYLANLABS-2014S1000457

PATIENT
  Age: 47 Year
  Sex: Male
  Weight: 77.11 kg

DRUGS (5)
  1. FENTANYL TRANSDERMAL SYSTEM [Suspect]
     Indication: PAIN
     Dosage: CHANGED Q72H
     Route: 062
     Dates: start: 201010
  2. PLAVIX [Concomitant]
     Route: 048
  3. BACLOFEN [Concomitant]
     Route: 048
  4. LIPITOR [Concomitant]
     Route: 048
  5. ASPIRIN [Concomitant]
     Route: 048

REACTIONS (2)
  - Application site erythema [Recovered/Resolved]
  - Wrong technique in drug usage process [Recovered/Resolved]
